FAERS Safety Report 7644953-7 (Version None)
Quarter: 2011Q3

REPORT INFORMATION
  Report Type: 
  Country: None (occurrence: None)
  Receive Date: 20110729
  Receipt Date: 20110704
  Transmission Date: 20111222
  Serious: Yes (Other)
  Sender: FDA-Public Use
  Company Number: CA-GLAXOSMITHKLINE-A0934665A

PATIENT
  Sex: Male
  Weight: 104.5 kg

DRUGS (1)
  1. AVODART [Suspect]
     Indication: PRODUCT USED FOR UNKNOWN INDICATION
     Dosage: 1TAB PER DAY
     Route: 065
     Dates: start: 20110206, end: 20110714

REACTIONS (2)
  - DRUG INEFFECTIVE [None]
  - BREAST DISCHARGE [None]
